FAERS Safety Report 9179844 (Version 2)
Quarter: 2013Q3

REPORT INFORMATION
  Report Type: Spontaneous
  Country: US (occurrence: US)
  Receive Date: 20130321
  Receipt Date: 20130705
  Transmission Date: 20140515
  Serious: Yes (Other)
  Sender: FDA-Public Use
  Company Number: CHPA2013US004736

PATIENT
  Age: 54 Year
  Sex: Female

DRUGS (12)
  1. THERAFLU HOT LIQUID MEDICINE UNKNOWN [Suspect]
     Indication: NASOPHARYNGITIS
     Dosage: 1-2 DF, QD
     Route: 048
     Dates: start: 200311, end: 200501
  2. THERAFLU HOT LIQUID MEDICINE UNKNOWN [Suspect]
     Indication: SINUSITIS
  3. SUDAFED [Concomitant]
     Dosage: UNK, UNK
  4. OXYCONTIN [Concomitant]
     Dosage: UNK, UNK
  5. OXYCODONE [Concomitant]
     Dosage: UNK, UNK
  6. SKELAXIN [Concomitant]
     Dosage: UNK, UNK
  7. RELPAX [Concomitant]
     Dosage: UNK, UNK
  8. NEXIUM//ESOMEPRAZOLE SODIUM [Concomitant]
     Dosage: UNK, UNK
  9. CELEBREX [Concomitant]
     Dosage: UNK, UNK
  10. SUDOGEST [Concomitant]
     Dosage: UNK, UNK
  11. ROZEREM [Concomitant]
     Dosage: UNK, UNK
  12. LIDODERM [Concomitant]
     Dosage: UNK, UNK

REACTIONS (4)
  - Renal failure [Recovered/Resolved]
  - Renal pain [Recovered/Resolved]
  - Therapeutic response unexpected [Unknown]
  - Off label use [Unknown]
